FAERS Safety Report 8072246-5 (Version None)
Quarter: 2012Q1

REPORT INFORMATION
  Report Type: 
  Country: None (occurrence: None)
  Receive Date: 20120126
  Receipt Date: 20120120
  Transmission Date: 20120608
  Serious: No
  Sender: FDA-Public Use
  Company Number: US-PFIZER INC-2012017265

PATIENT
  Sex: Female
  Weight: 62.1 kg

DRUGS (7)
  1. PREMPHASE (PREMARIN;CYCRIN 14/14) [Suspect]
     Indication: HYSTERECTOMY
     Dosage: 0.625 MG, 1X/DAY
     Route: 048
     Dates: start: 20110101
  2. AMITRIPTYLINE [Concomitant]
     Indication: SLEEP DISORDER
     Dosage: 75 MG, DAILY
  3. PREMPRO [Suspect]
     Indication: OOPHORECTOMY
     Dosage: 0.625/5 MG
     Route: 048
     Dates: start: 20120101
  4. SIMVASTATIN [Concomitant]
     Indication: BLOOD CHOLESTEROL INCREASED
     Dosage: UNK
     Dates: start: 20120113
  5. PREMPHASE (PREMARIN;CYCRIN 14/14) [Suspect]
     Indication: OOPHORECTOMY
     Dosage: 0.625/5 MG, DAILY
     Route: 048
  6. PREMPRO [Suspect]
     Indication: HYSTERECTOMY
     Dosage: 0.625/5 MG, DAILY
     Route: 048
  7. METFORMIN [Concomitant]
     Indication: DIABETES MELLITUS
     Dosage: UNK
     Dates: start: 20111027

REACTIONS (4)
  - HEAT RASH [None]
  - HOT FLUSH [None]
  - STRESS [None]
  - PRURITUS [None]
